FAERS Safety Report 4940889-0 (Version None)
Quarter: 2006Q1

REPORT INFORMATION
  Report Type: 
  Country: None (occurrence: None)
  Receive Date: 20060313
  Receipt Date: 20060302
  Transmission Date: 20060701
  Serious: Yes (Other)
  Sender: FDA-Public Use
  Company Number: BR-BRISTOL-MYERS SQUIBB COMPANY-13303334

PATIENT
  Age: 29 Year
  Sex: Female

DRUGS (1)
  1. BUSPAR [Suspect]
     Route: 048

REACTIONS (1)
  - COMA [None]
